FAERS Safety Report 9898557 (Version 3)
Quarter: 2015Q3

REPORT INFORMATION
  Report Type: Spontaneous
  Country: US (occurrence: US)
  Receive Date: 20140214
  Receipt Date: 20150810
  Transmission Date: 20151125
  Serious: No
  Sender: FDA-Public Use
  Company Number: US-GILEAD-2011-0042305

PATIENT
  Age: 56 Year
  Sex: Female

DRUGS (30)
  1. LETAIRIS [Suspect]
     Active Substance: AMBRISENTAN
     Indication: PULMONARY HYPERTENSION
     Route: 048
  2. ASPIRIN. [Concomitant]
     Active Substance: ASPIRIN
  3. PROAIR HFA [Concomitant]
     Active Substance: ALBUTEROL SULFATE
     Indication: CHRONIC OBSTRUCTIVE PULMONARY DISEASE
  4. VITAMIN B6 [Concomitant]
     Active Substance: PYRIDOXINE HYDROCHLORIDE
  5. VITAMIN B12 [Concomitant]
     Active Substance: CYANOCOBALAMIN
  6. CALCITRIOL. [Concomitant]
     Active Substance: CALCITRIOL
  7. LIPITOR [Concomitant]
     Active Substance: ATORVASTATIN CALCIUM
     Indication: BLOOD CHOLESTEROL
  8. ADVAIR HFA [Concomitant]
     Active Substance: FLUTICASONE PROPIONATE\SALMETEROL XINAFOATE
     Indication: CHRONIC OBSTRUCTIVE PULMONARY DISEASE
  9. ALBUTEROL. [Concomitant]
     Active Substance: ALBUTEROL
     Indication: CHRONIC OBSTRUCTIVE PULMONARY DISEASE
  10. NYSTOP [Concomitant]
     Active Substance: NYSTATIN
     Indication: RASH
  11. ATIVAN [Suspect]
     Active Substance: LORAZEPAM
     Indication: ANXIETY
  12. OXYGEN. [Concomitant]
     Active Substance: OXYGEN
     Indication: CHRONIC OBSTRUCTIVE PULMONARY DISEASE
  13. TRAMADOL HYDROCHLORIDE. [Concomitant]
     Active Substance: TRAMADOL HYDROCHLORIDE
     Indication: MIGRAINE
  14. FLEXERIL [Concomitant]
     Active Substance: CYCLOBENZAPRINE HYDROCHLORIDE
     Indication: PAIN
  15. CELEXA [Suspect]
     Active Substance: CITALOPRAM HYDROBROMIDE
     Indication: DEPRESSION
  16. CULTURELLE [Concomitant]
     Active Substance: LACTOBACILLUS RHAMNOSUS
  17. COUMADIN [Concomitant]
     Active Substance: WARFARIN SODIUM
  18. AMILORIDE [Concomitant]
     Active Substance: AMILORIDE
  19. LITHIUM. [Suspect]
     Active Substance: LITHIUM
     Indication: AFFECTIVE DISORDER
  20. RISPERDAL [Suspect]
     Active Substance: RISPERIDONE
  21. VENTAVIS [Concomitant]
     Active Substance: ILOPROST
  22. SPIRIVA [Concomitant]
     Active Substance: TIOTROPIUM BROMIDE MONOHYDRATE
     Indication: CHRONIC OBSTRUCTIVE PULMONARY DISEASE
  23. PREVIDENT [Concomitant]
     Active Substance: SODIUM FLUORIDE
  24. ELAVIL [Concomitant]
     Active Substance: AMITRIPTYLINE HYDROCHLORIDE
     Indication: DEPRESSION
  25. PRILOSEC [Concomitant]
     Active Substance: OMEPRAZOLE MAGNESIUM
  26. FERROUS SULFATE [Concomitant]
     Active Substance: FERROUS SULFATE\FERROUS SULFATE, DRIED
  27. METOPROLOL SUCCINATE. [Concomitant]
     Active Substance: METOPROLOL SUCCINATE
     Indication: HYPERTENSION
  28. FLUOCINONIDE. [Concomitant]
     Active Substance: FLUOCINONIDE
     Indication: SKIN ULCER
  29. FOLIC ACID. [Concomitant]
     Active Substance: FOLIC ACID
  30. MAGNESIUM [Concomitant]
     Active Substance: MAGNESIUM

REACTIONS (2)
  - Drug interaction [Unknown]
  - Depression [Recovering/Resolving]
